FAERS Safety Report 10285889 (Version 1)
Quarter: 2014Q3

REPORT INFORMATION
  Report Type: Spontaneous
  Country: US (occurrence: None)
  Receive Date: 20140703
  Receipt Date: 20140703
  Transmission Date: 20150326
  Serious: No
  Sender: FDA-Public Use
  Company Number: None

PATIENT
  Age: 47 Year
  Sex: Male
  Weight: 95.26 kg

DRUGS (2)
  1. PAXIL [Suspect]
     Active Substance: PAROXETINE HYDROCHLORIDE
     Route: 048
     Dates: start: 20140510, end: 20140627
  2. PAXIL [Suspect]
     Active Substance: PAROXETINE HYDROCHLORIDE
     Indication: DEPRESSION
     Route: 048
     Dates: start: 20140510, end: 20140627

REACTIONS (7)
  - Dizziness [None]
  - Paraesthesia [None]
  - Product quality issue [None]
  - Fatigue [None]
  - Malaise [None]
  - Headache [None]
  - Constipation [None]

NARRATIVE: CASE EVENT DATE: 20140516
